FAERS Safety Report 19256919 (Version 1)
Quarter: 2021Q2

REPORT INFORMATION
  Report Type: Spontaneous
  Country: US (occurrence: US)
  Receive Date: 20210514
  Receipt Date: 20210514
  Transmission Date: 20210717
  Serious: No
  Sender: FDA-Public Use
  Company Number: US-GLAXOSMITHKLINE-US2021AMR101298

PATIENT
  Sex: Female

DRUGS (1)
  1. ADVAIR HFA [Suspect]
     Active Substance: FLUTICASONE PROPIONATE\SALMETEROL XINAFOATE
     Indication: PRODUCT USED FOR UNKNOWN INDICATION
     Dosage: UNK, (45/21)
     Route: 055
     Dates: start: 202011

REACTIONS (4)
  - Chest discomfort [Recovered/Resolved]
  - Wrong technique in device usage process [Unknown]
  - Pulmonary pain [Recovered/Resolved]
  - Product storage error [Unknown]
